FAERS Safety Report 6023530 (Version 2)
Quarter: 2017Q3

REPORT INFORMATION
  Report Type: Report from Study
  Country: JP (occurrence: JP)
  Receive Date: 20060412
  Receipt Date: 20170901
  Transmission Date: 20171128
  Serious: Yes (Other)
  Sender: FDA-Public Use
  Company Number: JP-BRISTOL-MYERS SQUIBB COMPANY-13333687

PATIENT
  Age: 71 Year
  Sex: Male

DRUGS (2)
  1. NEUTROGIN [Suspect]
     Active Substance: LENOGRASTIM
     Indication: PRODUCT USED FOR UNKNOWN INDICATION
     Dosage: DOSE 100 MICROUNITS 100 UG/DAY FROM 10-MAR-2005 TO 14-MAR-2005, 100 UG X2/DAY STARTING 15-MAR-2005
     Route: 065
     Dates: start: 20050310, end: 20050321
  2. CEFEPIME DIHYDROCHLORIDE MONOHYDRATE [Suspect]
     Active Substance: CEFEPIME HYDROCHLORIDE
     Indication: FEBRILE NEUTROPENIA
     Dosage: 10-MAR-2005 TO 11-MAR-2005 1 GRAM X 2/DAY INCREASED TO 2 GRAM/DAY ON 12-MAR-2005
     Route: 065
     Dates: start: 20050310, end: 20050322

REACTIONS (3)
  - Rash [Unknown]
  - Loss of consciousness [Recovered/Resolved]
  - Pyrexia [Recovered/Resolved]

NARRATIVE: CASE EVENT DATE: 20050320
